FAERS Safety Report 5634726-9 (Version None)
Quarter: 2008Q1

REPORT INFORMATION
  Report Type: 
  Country: None (occurrence: None)
  Receive Date: 20080221
  Receipt Date: 20080221
  Transmission Date: 20080703
  Serious: Yes (Hospitalization)
  Sender: FDA-Public Use
  Company Number: None

PATIENT
  Age: 67 Year
  Sex: Male

DRUGS (1)
  1. ALTEPLASE [Suspect]
     Indication: DRUG THERAPY
     Dosage: 4MG  ONCE  OTHER
     Route: 050
     Dates: start: 20071014, end: 20071014

REACTIONS (2)
  - PYREXIA [None]
  - RASH [None]
